FAERS Safety Report 10044892 (Version 1)
Quarter: 2014Q1

REPORT INFORMATION
  Report Type: Spontaneous
  Country: US (occurrence: US)
  Receive Date: 20140328
  Receipt Date: 20140328
  Transmission Date: 20141002
  Serious: Yes (Hospitalization)
  Sender: FDA-Public Use
  Company Number: US-GLAXOSMITHKLINE-A1066311A

PATIENT
  Age: 55 Year
  Sex: Female

DRUGS (4)
  1. LAMICTAL [Suspect]
     Indication: BIPOLAR DISORDER
     Dosage: 300MG AT NIGHT
     Route: 048
     Dates: start: 2012
  2. WELLBUTRIN [Concomitant]
  3. TRAMADOL [Concomitant]
  4. KLONOPIN [Concomitant]

REACTIONS (1)
  - Myocardial infarction [Recovered/Resolved]
